FAERS Safety Report 10009885 (Version 2)
Quarter: 2014Q1

REPORT INFORMATION
  Report Type: Spontaneous
  Country: US (occurrence: US)
  Receive Date: 20140312
  Receipt Date: 20140312
  Transmission Date: 20141002
  Serious: Yes (Other)
  Sender: FDA-Public Use
  Company Number: US-INCYTE CORPORATION-2013IN000234

PATIENT
  Age: 78 Year
  Sex: Male

DRUGS (2)
  1. JAKAFI [Suspect]
     Indication: MYELOFIBROSIS
     Dosage: 5 MG, BID
     Route: 048
     Dates: start: 20121129, end: 20130219
  2. JAKAFI [Suspect]
     Dosage: 20 MG, BID
     Route: 048

REACTIONS (3)
  - Anaemia [Not Recovered/Not Resolved]
  - Disease progression [Unknown]
  - Nasopharyngitis [Recovering/Resolving]
